FAERS Safety Report 7356035-2 (Version None)
Quarter: 2011Q1

REPORT INFORMATION
  Report Type: 
  Country: None (occurrence: None)
  Receive Date: 20110316
  Receipt Date: 20110311
  Transmission Date: 20110831
  Serious: Yes (Other)
  Sender: FDA-Public Use
  Company Number: US-ABBOTT-11P-163-0711276-00

PATIENT
  Sex: Female
  Weight: 77.18 kg

DRUGS (4)
  1. OMEPRAZOLE [Concomitant]
     Indication: GASTROOESOPHAGEAL REFLUX DISEASE
  2. HUMIRA [Suspect]
     Indication: PSORIASIS
     Dates: start: 20090101, end: 20100901
  3. PAROXETINE [Concomitant]
     Indication: DEPRESSION
  4. HUMIRA [Suspect]
     Route: 058
     Dates: start: 20110311

REACTIONS (2)
  - PSORIASIS [None]
  - CHOLECYSTECTOMY [None]
